FAERS Safety Report 10265225 (Version 1)
Quarter: 2014Q2

REPORT INFORMATION
  Report Type: Spontaneous
  Country: PL (occurrence: PL)
  Receive Date: 20140627
  Receipt Date: 20140627
  Transmission Date: 20141212
  Serious: Yes (Other)
  Sender: FDA-Public Use
  Company Number: PL-MERCK-1406POL011164

PATIENT
  Sex: 0

DRUGS (2)
  1. PEGINTERFERON ALFA-2B [Suspect]
     Indication: HEPATITIS C
     Dosage: UNK
     Dates: start: 2011
  2. RIBAVIRIN [Suspect]
     Indication: HEPATITIS C
     Dosage: UNK
     Route: 048
     Dates: start: 2011

REACTIONS (1)
  - Bone marrow failure [Recovered/Resolved]
